FAERS Safety Report 21829024 (Version 2)
Quarter: 2023Q1

REPORT INFORMATION
  Report Type: Report from Study
  Country: US (occurrence: US)
  Receive Date: 20230106
  Receipt Date: 20230112
  Transmission Date: 20230418
  Serious: No
  Sender: FDA-Public Use
  Company Number: US-ABBVIE-4259900

PATIENT
  Age: 80 Year
  Sex: Female

DRUGS (1)
  1. IMBRUVICA [Suspect]
     Active Substance: IBRUTINIB
     Indication: Waldenstrom^s macroglobulinaemia
     Route: 048
     Dates: start: 20220614

REACTIONS (7)
  - Food poisoning [Recovering/Resolving]
  - Skin laceration [Recovered/Resolved]
  - Diarrhoea [Not Recovered/Not Resolved]
  - Localised infection [Recovered/Resolved]
  - Impaired healing [Unknown]
  - Adverse food reaction [Unknown]
  - Asthenia [Unknown]

NARRATIVE: CASE EVENT DATE: 20230103
